FAERS Safety Report 14907418 (Version 2)
Quarter: 2018Q2

REPORT INFORMATION
  Report Type: Report from Study
  Country: CA (occurrence: CA)
  Receive Date: 20180517
  Receipt Date: 20180518
  Transmission Date: 20180711
  Serious: Yes (Other)
  Sender: FDA-Public Use
  Company Number: CA-AMGEN-CANSL2018063768

PATIENT
  Age: 52 Year
  Sex: Male
  Weight: 84.5 kg

DRUGS (22)
  1. ENBREL [Suspect]
     Active Substance: ETANERCEPT
     Dosage: 50 MG, QWK
     Route: 065
  2. ENBREL [Suspect]
     Active Substance: ETANERCEPT
     Dosage: 50 MG, Q2WK
     Route: 058
     Dates: start: 2011
  3. PROCTOSEDYL [Concomitant]
     Active Substance: DIBUCAINE HYDROCHLORIDE\HYDROCORTISONE
     Dosage: UNK UNK, BID PRN
  4. TYLENOL [Concomitant]
     Active Substance: ACETAMINOPHEN
     Dosage: 600 UNK, UNK
  5. MOBICOX [Concomitant]
     Active Substance: MELOXICAM
     Dosage: 15 MG, QD
     Route: 048
  6. PREVNAR 13 [Concomitant]
     Active Substance: PNEUMOCOCCAL 13-VALENT CONJUGATE VACCINE
     Dosage: UNK
     Dates: start: 20151211
  7. SUCRALFATE. [Concomitant]
     Active Substance: SUCRALFATE
  8. ACTONEL [Suspect]
     Active Substance: RISEDRONATE SODIUM
     Indication: PRODUCT USED FOR UNKNOWN INDICATION
     Dosage: 150 UNK, QMO
     Route: 065
  9. ROSUVASTATIN. [Concomitant]
     Active Substance: ROSUVASTATIN
  10. LEFLUNOMIDE. [Suspect]
     Active Substance: LEFLUNOMIDE
     Indication: PRODUCT USED FOR UNKNOWN INDICATION
     Dosage: 20 MG, QD
     Route: 065
     Dates: start: 2000, end: 2006
  11. CALCIUM [Concomitant]
     Active Substance: CALCIUM
     Dosage: 1000 MG, QD
  12. ENBREL [Suspect]
     Active Substance: ETANERCEPT
     Indication: RHEUMATOID ARTHRITIS
     Dosage: 50 MG, QWK
     Route: 065
     Dates: start: 20020115
  13. PNEUMOVAX 23 [Concomitant]
     Active Substance: PNEUMOCOCCAL VACCINE, POLYVALENT 23
     Dosage: UNK
     Dates: start: 20061231
  14. PREGABALIN. [Concomitant]
     Active Substance: PREGABALIN
  15. PERINDOPRIL [Concomitant]
     Active Substance: PERINDOPRIL
  16. MOTILIUM [Concomitant]
     Active Substance: DOMPERIDONE
     Dosage: 10 MG, TID
     Route: 048
  17. TD ADSORBED [Concomitant]
     Dosage: UNK
     Dates: start: 20170102
  18. LEVOTHYROXINE. [Concomitant]
     Active Substance: LEVOTHYROXINE
  19. VITAMIN D [Concomitant]
     Active Substance: CHOLECALCIFEROL
     Dosage: 1000 IU, QD
  20. AZATHIOPRINE. [Concomitant]
     Active Substance: AZATHIOPRINE
     Dosage: 100 MG, QD
     Route: 048
     Dates: start: 2013
  21. INFLUENZA [Concomitant]
     Active Substance: INFLUENZA VIRUS VACCINE
     Dosage: UNK
     Dates: start: 20171221
  22. ZOSTAVAX [Concomitant]
     Active Substance: VARICELLA-ZOSTER VIRUS STRAIN OKA/MERCK LIVE ANTIGEN
     Dosage: UNK
     Dates: start: 20161117

REACTIONS (32)
  - Joint dislocation reduction [Unknown]
  - Oropharyngeal pain [Unknown]
  - Dyslipidaemia [Unknown]
  - Inguinal hernia repair [Unknown]
  - Cataract [Unknown]
  - Glaucoma [Unknown]
  - Shoulder arthroplasty [Unknown]
  - Hip arthroplasty [Unknown]
  - Nasal crusting [Unknown]
  - Muscle twitching [Recovered/Resolved]
  - Hypercholesterolaemia [Unknown]
  - Hypertension [Unknown]
  - Transaminases increased [Unknown]
  - Rheumatoid arthritis [Unknown]
  - Migraine with aura [Not Recovered/Not Resolved]
  - Muscle spasms [Unknown]
  - Myelitis transverse [Recovering/Resolving]
  - Knee arthroplasty [Unknown]
  - Foot operation [Unknown]
  - Hypothyroidism [Unknown]
  - Gastrooesophageal reflux disease [Unknown]
  - Osteoarthritis [Unknown]
  - Joint dislocation [Not Recovered/Not Resolved]
  - Perineal disorder [Unknown]
  - Osteoporosis [Unknown]
  - Bone erosion [Not Recovered/Not Resolved]
  - Neutropenia [Unknown]
  - Felty^s syndrome [Unknown]
  - Arteriosclerosis [Unknown]
  - Extranodal marginal zone B-cell lymphoma (MALT type) [Unknown]
  - Renal impairment [Unknown]
  - Type 2 diabetes mellitus [Unknown]

NARRATIVE: CASE EVENT DATE: 2002
